FAERS Safety Report 9780546 (Version 1)
Quarter: 2013Q4

REPORT INFORMATION
  Report Type: Spontaneous
  Country: US (occurrence: US)
  Receive Date: 20131224
  Receipt Date: 20131224
  Transmission Date: 20140711
  Serious: Yes (Other)
  Sender: FDA-Public Use
  Company Number: US-BRISTOL-MYERS SQUIBB COMPANY-19919406

PATIENT
  Age: 62 Year
  Sex: Female
  Weight: 115.19 kg

DRUGS (8)
  1. ELIQUIS [Suspect]
     Indication: ATRIAL FIBRILLATION
  2. PACERONE [Concomitant]
  3. IRON [Concomitant]
  4. DILTIAZEM HCL [Concomitant]
  5. FOLIC ACID [Concomitant]
  6. ACIDOPHILUS [Concomitant]
  7. VITAMIN C [Concomitant]
  8. ACETAMINOPHEN + HYDROCODONE [Concomitant]
     Dosage: 1DF: 7.5/500 AT NIGHT

REACTIONS (3)
  - Gastric haemorrhage [Unknown]
  - Anaemia [Unknown]
  - Heart rate irregular [Unknown]
